FAERS Safety Report 7221960-X (Version None)
Quarter: 2011Q1

REPORT INFORMATION
  Report Type: 
  Country: None (occurrence: None)
  Receive Date: 20110112
  Receipt Date: 20110106
  Transmission Date: 20110831
  Serious: Yes (Death, Disabling)
  Sender: FDA-Public Use
  Company Number: B0692960A

PATIENT
  Age: 23 Year
  Sex: Male
  Weight: 66 kg

DRUGS (16)
  1. DUROTEP [Concomitant]
     Dosage: 4.2MG THREE TIMES PER DAY
     Route: 048
     Dates: start: 20090817, end: 20090831
  2. PROGRAF [Suspect]
     Indication: IMMUNOSUPPRESSION
     Dosage: .03MGK PER DAY
     Route: 065
     Dates: start: 20090730, end: 20090817
  3. FLUCONAZOLE [Concomitant]
     Dosage: 200MG PER DAY
     Route: 048
     Dates: start: 20090727, end: 20090831
  4. MAGLAX [Concomitant]
     Dosage: 990MG PER DAY
     Route: 048
     Dates: start: 20090728, end: 20090831
  5. ZYLORIC [Concomitant]
     Dosage: 200MG PER DAY
     Route: 048
     Dates: start: 20090727, end: 20090831
  6. BROCIN [Concomitant]
     Dosage: 12ML PER DAY
     Route: 048
     Dates: start: 20090809, end: 20090831
  7. ADALAT [Concomitant]
     Dosage: 10MG PER DAY
     Route: 048
     Dates: start: 20090825, end: 20090831
  8. NEUTROGIN [Concomitant]
     Dates: start: 20090805, end: 20090808
  9. TAKEPRON [Concomitant]
     Dosage: 30MG PER DAY
     Route: 048
     Dates: start: 20090727, end: 20090831
  10. CRAVIT [Concomitant]
     Dosage: 300MG PER DAY
     Route: 048
     Dates: start: 20090727, end: 20090831
  11. URSO 250 [Concomitant]
     Dosage: 600MG PER DAY
     Route: 048
     Dates: start: 20090727, end: 20090831
  12. WINTERMIN [Concomitant]
     Dosage: 30MG PER DAY
     Route: 048
     Dates: start: 20090806, end: 20090831
  13. LOPEMIN [Concomitant]
     Dosage: 1MG PER DAY
     Route: 048
     Dates: start: 20090823, end: 20090831
  14. ALKERAN [Suspect]
     Indication: CORD BLOOD TRANSPLANT THERAPY
     Dosage: 245MG PER DAY
     Route: 042
     Dates: start: 20090727, end: 20090727
  15. ACIROVEC [Concomitant]
     Dosage: 1000MG PER DAY
     Route: 048
     Dates: start: 20090727, end: 20090831
  16. GABAPENTIN [Concomitant]
     Dosage: 400MG PER DAY
     Route: 048
     Dates: start: 20090818, end: 20090831

REACTIONS (3)
  - VENOOCCLUSIVE LIVER DISEASE [None]
  - TOXIC ENCEPHALOPATHY [None]
  - RENAL FAILURE ACUTE [None]
